FAERS Safety Report 5553320-1 (Version None)
Quarter: 2007Q4

REPORT INFORMATION
  Report Type: 
  Country: None (occurrence: None)
  Receive Date: 20071213
  Receipt Date: 20071205
  Transmission Date: 20080405
  Serious: Yes (Hospitalization, Other)
  Sender: FDA-Public Use
  Company Number: GB-RB-007742-07

PATIENT
  Age: 51 Year
  Sex: Male

DRUGS (5)
  1. SUBOXONE [Suspect]
     Route: 060
     Dates: start: 20070706, end: 20070713
  2. CANNABIS [Concomitant]
     Indication: DRUG USE FOR UNKNOWN INDICATION
     Dosage: DOSAGE UNKNOWN
     Route: 065
  3. SUBUTEX [Concomitant]
     Indication: DRUG USE FOR UNKNOWN INDICATION
     Route: 065
     Dates: start: 20070714
  4. SUBUTEX [Concomitant]
     Dosage: DOSAGE UNKNOWN
     Route: 065
     Dates: start: 20060323, end: 20070706
  5. HEROIN [Concomitant]
     Indication: DRUG USE FOR UNKNOWN INDICATION
     Dosage: DOSAGE UNKNOWN
     Route: 065

REACTIONS (4)
  - HEAD INJURY [None]
  - PSYCHOTIC BEHAVIOUR [None]
  - SUBSTANCE ABUSE [None]
  - SYNCOPE [None]
